FAERS Safety Report 7079964 (Version 2)
Quarter: 2014Q3

REPORT INFORMATION
  Report Type: Spontaneous
  Country: US (occurrence: None)
  Receive Date: 20090805
  Receipt Date: 20140926
  Transmission Date: 20150326
  Serious: Yes (Other)
  Sender: FDA-Public Use
  Company Number: 2009S1005928

PATIENT
  Age: 58 Year
  Sex: Male

DRUGS (6)
  1. PRINZIDE (HYDROCHLOROTHIAZIDE , LISINOPRIL DIHYDRATE, LISINOPRIL DIHYDRATE) [Concomitant]
  2. INDOMETHACIN (INDOMETACIN) [Concomitant]
  3. PHOSPHO-SODA [Suspect]
     Active Substance: SODIUM PHOSPHATE, DIBASIC\SODIUM PHOSPHATE, MONOBASIC
     Indication: COLONOSCOPY
     Dosage: 90 ML; TOTAL; PO
     Route: 048
     Dates: start: 20080726, end: 20080726
  4. HYDROCODONE AND ACETAMINOPHEN (PARACETAMOL, HYDROCODONE BITARTRATE) [Concomitant]
  5. METFORMIN [Concomitant]
     Active Substance: METFORMIN HYDROCHLORIDE
  6. IBUPROFEN. [Concomitant]
     Active Substance: IBUPROFEN

REACTIONS (10)
  - Ear injury [None]
  - Wound [None]
  - Fatigue [None]
  - Chest pain [None]
  - Nephrogenic anaemia [None]
  - Renal failure acute [None]
  - Toxicity to various agents [None]
  - Renal failure chronic [None]
  - Dizziness [None]
  - Blood parathyroid hormone increased [None]

NARRATIVE: CASE EVENT DATE: 200809
